FAERS Safety Report 4676951-X (Version None)
Quarter: 2005Q2

REPORT INFORMATION
  Report Type: 
  Country: None (occurrence: None)
  Receive Date: 20050526
  Receipt Date: 20050518
  Transmission Date: 20051028
  Serious: Yes (Hospitalization)
  Sender: FDA-Public Use
  Company Number: 2005077315

PATIENT
  Age: 19 Year
  Sex: Female

DRUGS (2)
  1. ZOLOFT [Suspect]
     Indication: ILL-DEFINED DISORDER
  2. ABILIFY [Suspect]
     Indication: ILL-DEFINED DISORDER

REACTIONS (2)
  - ABNORMAL BEHAVIOUR [None]
  - TREATMENT NONCOMPLIANCE [None]
